FAERS Safety Report 24137515 (Version 1)
Quarter: 2024Q3

REPORT INFORMATION
  Report Type: Spontaneous
  Country: US (occurrence: None)
  Receive Date: 20240725
  Receipt Date: 20240725
  Transmission Date: 20241016
  Serious: Yes (Hospitalization)
  Sender: Public
  Company Number: None

PATIENT
  Age: 47 Year
  Sex: Female
  Weight: 82.1 kg

DRUGS (3)
  1. TRABECTEDIN [Suspect]
     Active Substance: TRABECTEDIN
     Dates: start: 20240410, end: 20240702
  2. IBUPROFEN [Concomitant]
     Active Substance: IBUPROFEN
  3. METOPROLOL [Concomitant]
     Active Substance: METOPROLOL

REACTIONS (10)
  - Pain [None]
  - Swelling [None]
  - Abdominal mass [None]
  - Pelvic mass [None]
  - Cough [None]
  - Vomiting [None]
  - Dyspnoea [None]
  - Loss of personal independence in daily activities [None]
  - Insomnia [None]
  - Cyst [None]

NARRATIVE: CASE EVENT DATE: 20240711
